FAERS Safety Report 5136020-1 (Version None)
Quarter: 2006Q4

REPORT INFORMATION
  Report Type: 
  Country: None (occurrence: None)
  Receive Date: 20061020
  Receipt Date: 20061011
  Transmission Date: 20070319
  Serious: Yes (Death, Other)
  Sender: FDA-Public Use
  Company Number: 2006SP004365

PATIENT

DRUGS (2)
  1. TEMOZOLOMIDE (S-P) (TEMOZOLOMIDE) [Suspect]
     Indication: ANAPLASTIC ASTROCYTOMA
     Dosage: QOW
  2. TEMOZOLOMIDE (S-P) (TEMOZOLOMIDE) [Suspect]
     Indication: GLIOBLASTOMA
     Dosage: QOW

REACTIONS (6)
  - CYTOMEGALOVIRUS INFECTION [None]
  - ENDOCARDITIS [None]
  - PANCYTOPENIA [None]
  - PNEUMONIA PRIMARY ATYPICAL [None]
  - SEPTIC EMBOLUS [None]
  - UNEVALUABLE EVENT [None]
